FAERS Safety Report 19289018 (Version 1)
Quarter: 2021Q2

REPORT INFORMATION
  Report Type: Report from Study
  Country: US (occurrence: US)
  Receive Date: 20210521
  Receipt Date: 20210521
  Transmission Date: 20210717
  Serious: Yes (Other)
  Sender: FDA-Public Use
  Company Number: US-EVEREST MEDICINES II (HK) LIMITED-2021-0531348

PATIENT
  Age: 70 Year
  Sex: Female

DRUGS (1)
  1. SACITUZUMAB GOVITECAN. [Suspect]
     Active Substance: SACITUZUMAB GOVITECAN
     Indication: BREAST CANCER
     Dosage: 422 MG, OVER 3 HOURS ON DAY 1, THEN OVER 1 HOUR ON DAY 8 EVERY 21 DAYS
     Route: 042
     Dates: start: 20201221

REACTIONS (1)
  - Disease progression [Unknown]
